FAERS Safety Report 8571481-7 (Version None)
Quarter: 2012Q3

REPORT INFORMATION
  Report Type: 
  Country: None (occurrence: None)
  Receive Date: 20120724
  Receipt Date: 20120717
  Transmission Date: 20120928
  Serious: No
  Sender: FDA-Public Use
  Company Number: ALK_02680_2012

PATIENT
  Sex: Male

DRUGS (1)
  1. VIVITROL [Suspect]
     Indication: ALCOHOL ABUSE
     Dosage: (380 MG 1X/28 DAYS INTRAMUSCULAR)
     Route: 030
     Dates: start: 20120317

REACTIONS (2)
  - NO THERAPEUTIC RESPONSE [None]
  - LOWER LIMB FRACTURE [None]
